FAERS Safety Report 11981756 (Version 1)
Quarter: 2016Q1

REPORT INFORMATION
  Report Type: Spontaneous
  Country: CA (occurrence: CA)
  Receive Date: 20160131
  Receipt Date: 20160131
  Transmission Date: 20160526
  Serious: Yes (Other)
  Sender: FDA-Public Use
  Company Number: CA-TEVA-629404ACC

PATIENT
  Age: 31 Year
  Sex: Female
  Weight: 55 kg

DRUGS (1)
  1. FLUCONAZOLE. [Suspect]
     Active Substance: FLUCONAZOLE
     Indication: VAGINAL INFECTION
     Dosage: ONCE
     Route: 048

REACTIONS (1)
  - Uveitis [Not Recovered/Not Resolved]
